FAERS Safety Report 12580032 (Version 2)
Quarter: 2019Q1

REPORT INFORMATION
  Report Type: Spontaneous
  Country: US (occurrence: US)
  Receive Date: 20160721
  Receipt Date: 20190104
  Transmission Date: 20190417
  Serious: No
  Sender: FDA-Public Use
  Company Number: US-PFIZER INC-2016030904

PATIENT
  Sex: Female

DRUGS (1)
  1. CIPROFLOXACIN. [Suspect]
     Active Substance: CIPROFLOXACIN
     Dosage: UNK

REACTIONS (7)
  - Drug hypersensitivity [Unknown]
  - Vomiting [Unknown]
  - Dysgeusia [Unknown]
  - Product taste abnormal [Unknown]
  - Skin odour abnormal [Unknown]
  - Product odour abnormal [Unknown]
  - Nausea [Unknown]
